FAERS Safety Report 24690168 (Version 1)
Quarter: 2024Q4

REPORT INFORMATION
  Report Type: Spontaneous
  Country: US (occurrence: None)
  Receive Date: 20241203
  Receipt Date: 20241203
  Transmission Date: 20250115
  Serious: Yes (Death, Hospitalization)
  Sender: Public
  Company Number: None

PATIENT
  Sex: Male
  Weight: 66.8 kg

DRUGS (3)
  1. FLUOROURACIL [Suspect]
     Active Substance: FLUOROURACIL
     Dates: end: 20210831
  2. IRINOTECAN SUCROSOFATE [Suspect]
     Active Substance: IRINOTECAN SUCROSOFATE
     Dates: end: 20210831
  3. LEUCOVORIN CALCIUM [Suspect]
     Active Substance: LEUCOVORIN CALCIUM
     Dates: end: 20210831

REACTIONS (6)
  - Choking sensation [None]
  - Vomiting [None]
  - Vomiting [None]
  - Constipation [None]
  - Pancreatic carcinoma metastatic [None]
  - Small intestinal obstruction [None]

NARRATIVE: CASE EVENT DATE: 20240926
